FAERS Safety Report 6674990-0 (Version None)
Quarter: 2010Q1

REPORT INFORMATION
  Report Type: 
  Country: None (occurrence: None)
  Receive Date: 20100331
  Receipt Date: 20091028
  Transmission Date: 20100710
  Serious: Yes (Hospitalization, Other)
  Sender: FDA-Public Use
  Company Number: 2009274354

PATIENT
  Age: 69 Year
  Sex: Male
  Weight: 80.3 kg

DRUGS (7)
  1. SUTENT [Suspect]
     Indication: METASTATIC RENAL CELL CARCINOMA
     Dosage: 50 MG, 1X/DAY,4 WEEKS ON/2 WEEKS OFF
     Dates: start: 20090501
  2. CLONIDINE [Concomitant]
  3. PHOSLO [Concomitant]
  4. FUROSEMIDE [Concomitant]
  5. LISINOPRIL [Concomitant]
  6. METOPROLOL (METOPROLOL) [Concomitant]
  7. SODIUM BICARBONATE IN PLASTIC CONTAINER [Concomitant]

REACTIONS (10)
  - ABDOMINAL DISCOMFORT [None]
  - ANAEMIA [None]
  - CARDIAC FAILURE CONGESTIVE [None]
  - DECREASED APPETITE [None]
  - DIARRHOEA [None]
  - DYSPNOEA [None]
  - FATIGUE [None]
  - MOUTH ULCERATION [None]
  - PLATELET COUNT DECREASED [None]
  - PRODUCTIVE COUGH [None]
